FAERS Safety Report 8790101 (Version 2)
Quarter: 2012Q4

REPORT INFORMATION
  Report Type: 
  Country: JP (occurrence: JP)
  Receive Date: 20120917
  Receipt Date: 20121207
  Transmission Date: 20130627
  Serious: Yes (Death)
  Sender: FDA-Public Use
  Company Number: JP-EISAI INC-E2020-11247-SPO-JP

PATIENT
  Age: 75 Year
  Sex: Male

DRUGS (8)
  1. ARICEPT [Suspect]
     Indication: DEMENTIA ALZHEIMER^S TYPE
     Route: 048
     Dates: start: 20080425, end: 20110901
  2. ARICEPT [Suspect]
     Route: 048
     Dates: start: 20110913
  3. THYRADIN S [Suspect]
     Indication: HORMONE REPLACEMENT THERAPY
     Route: 048
     Dates: start: 20080425
  4. LANSOPRAZOLE [Suspect]
     Indication: REFLUX OESOPHAGITIS
     Route: 048
     Dates: start: 20100121
  5. ASPEN [Suspect]
     Indication: PROSTATIC HYPERPLASIA
     Route: 048
     Dates: start: 20100311
  6. MEMARY [Concomitant]
     Indication: DEMENTIA ALZHEIMER^S TYPE
     Route: 048
     Dates: start: 20120216, end: 20120222
  7. MEMARY [Concomitant]
     Route: 048
     Dates: start: 20120223, end: 20120229
  8. MEMARY [Concomitant]
     Route: 048
     Dates: start: 20120301, end: 20120314

REACTIONS (1)
  - Arrhythmia [Fatal]
